FAERS Safety Report 18060824 (Version 1)
Quarter: 2020Q3

REPORT INFORMATION
  Report Type: Spontaneous
  Country: US (occurrence: US)
  Receive Date: 20200723
  Receipt Date: 20200723
  Transmission Date: 20201103
  Serious: Yes (Hospitalization, Other)
  Sender: FDA-Public Use
  Company Number: US-VALIDUS PHARMACEUTICALS LLC-US-2020VAL000612

PATIENT

DRUGS (3)
  1. URSODEOXYCHOLIC ACID [Concomitant]
     Active Substance: URSODIOL
     Indication: PRODUCT USED FOR UNKNOWN INDICATION
     Dosage: UNK
  2. OCALIVA [Suspect]
     Active Substance: OBETICHOLIC ACID
     Indication: PRIMARY BILIARY CHOLANGITIS
     Dosage: 5 MG, QD
     Route: 048
     Dates: start: 20190928
  3. LASIX [Suspect]
     Active Substance: FUROSEMIDE
     Indication: OEDEMA PERIPHERAL
     Dosage: UNK
     Route: 065
     Dates: end: 2020

REACTIONS (7)
  - Dyspnoea [Unknown]
  - Acute kidney injury [Recovered/Resolved]
  - Cough [Unknown]
  - Acute respiratory failure [Unknown]
  - Polyuria [Unknown]
  - Cardiac failure acute [Unknown]
  - Viral infection [Unknown]

NARRATIVE: CASE EVENT DATE: 202002
